FAERS Safety Report 25042562 (Version 1)
Quarter: 2025Q1

REPORT INFORMATION
  Report Type: Spontaneous
  Country: US (occurrence: US)
  Receive Date: 20250305
  Receipt Date: 20250305
  Transmission Date: 20250409
  Serious: Yes (Hospitalization)
  Sender: SANOFI AVENTIS
  Company Number: US-SA-2025SA063609

PATIENT
  Age: 65 Year
  Sex: Male
  Weight: 67 kg

DRUGS (21)
  1. DUPIXENT [Suspect]
     Active Substance: DUPILUMAB
     Dosage: 300 MG, QOW
     Route: 058
  2. NEMOLIZUMAB [Suspect]
     Active Substance: NEMOLIZUMAB
     Dates: start: 202412
  3. LEVOTHYROXINE SODIUM [Concomitant]
     Active Substance: LEVOTHYROXINE SODIUM
  4. MUPIROCIN [Concomitant]
     Active Substance: MUPIROCIN
  5. HYDROXYZINE [Concomitant]
     Active Substance: HYDROXYZINE HYDROCHLORIDE
  6. HYDROMORPHONE [Concomitant]
     Active Substance: HYDROMORPHONE
  7. ONDANSETRON [Concomitant]
     Active Substance: ONDANSETRON
  8. CYCLOSPORINE [Concomitant]
     Active Substance: CYCLOSPORINE
  9. NOVOLIN N [Concomitant]
     Active Substance: INSULIN HUMAN
  10. CETIRIZINE [Concomitant]
     Active Substance: CETIRIZINE HYDROCHLORIDE
  11. ELIQUIS [Concomitant]
     Active Substance: APIXABAN
  12. LIDOCAINE [Concomitant]
     Active Substance: LIDOCAINE
  13. SERTRALINE [Concomitant]
     Active Substance: SERTRALINE HYDROCHLORIDE
  14. LOPERAMIDE [Concomitant]
     Active Substance: LOPERAMIDE
  15. LOSARTAN POTASSIUM [Concomitant]
     Active Substance: LOSARTAN POTASSIUM
  16. METOPROLOL TARTRATE [Concomitant]
     Active Substance: METOPROLOL TARTRATE
  17. PREDNISONE [Concomitant]
     Active Substance: PREDNISONE
  18. ATOVAQUONE [Concomitant]
     Active Substance: ATOVAQUONE
  19. GABAPENTIN [Concomitant]
     Active Substance: GABAPENTIN
  20. METFORMIN [Concomitant]
     Active Substance: METFORMIN HYDROCHLORIDE
  21. PANTOPRAZOLE SODIUM [Concomitant]
     Active Substance: PANTOPRAZOLE SODIUM

REACTIONS (1)
  - Illness [Unknown]

NARRATIVE: CASE EVENT DATE: 20240101
